FAERS Safety Report 4640596-8 (Version None)
Quarter: 2005Q2

REPORT INFORMATION
  Report Type: 
  Country: None (occurrence: None)
  Receive Date: 20050419
  Receipt Date: 20050407
  Transmission Date: 20051028
  Serious: Yes (Hospitalization, Other)
  Sender: FDA-Public Use
  Company Number: 213667

PATIENT
  Sex: Male

DRUGS (2)
  1. MABTHERA (RITUXIMAB) CONC FOR SOLUTION FOR INFUSION [Suspect]
     Indication: WALDENSTROM'S MACROGLOBULINAEMIA
     Dosage: INTRAVENOUS
     Route: 042
     Dates: start: 20050301
  2. ANTIBIOTICS  (ANTIBIOTICS NOS) [Concomitant]

REACTIONS (6)
  - CONFUSIONAL STATE [None]
  - DISEASE PROGRESSION [None]
  - INCONTINENCE [None]
  - MOBILITY DECREASED [None]
  - PNEUMONIA [None]
  - SUPRANUCLEAR PALSY [None]
